FAERS Safety Report 6955285-4 (Version None)
Quarter: 2010Q3

REPORT INFORMATION
  Report Type: 
  Country: None (occurrence: None)
  Receive Date: 20100830
  Receipt Date: 20100818
  Transmission Date: 20110219
  Serious: Yes (Hospitalization, Other)
  Sender: FDA-Public Use
  Company Number: PHHY2010FR55375

PATIENT
  Sex: Female

DRUGS (4)
  1. CIBADREX [Suspect]
     Indication: HYPERTENSION
     Dosage: UNK
     Route: 048
     Dates: end: 20100101
  2. LAMALINE [Suspect]
     Dosage: UNK
     Route: 048
     Dates: end: 20100101
  3. CALPEROS D3 [Concomitant]
     Route: 048
  4. PROTELOS (STRONTIUM RANELATE) [Concomitant]
     Indication: OSTEOPOROSIS
     Route: 048

REACTIONS (8)
  - ECCHYMOSIS [None]
  - FACE INJURY [None]
  - FALL [None]
  - HEAD INJURY [None]
  - HYPOKALAEMIA [None]
  - LOSS OF CONSCIOUSNESS [None]
  - ORTHOSTATIC HYPOTENSION [None]
  - RHABDOMYOLYSIS [None]
